FAERS Safety Report 5245500-X (Version None)
Quarter: 2007Q1

REPORT INFORMATION
  Report Type: 
  Country: None (occurrence: None)
  Receive Date: 20070223
  Receipt Date: 20070214
  Transmission Date: 20070707
  Serious: Yes (Other)
  Sender: FDA-Public Use
  Company Number: US-PFIZER INC-2006069981

PATIENT
  Sex: Female
  Weight: 56.2 kg

DRUGS (1)
  1. XALATAN [Suspect]
     Indication: GLAUCOMA
     Route: 065

REACTIONS (5)
  - EYE IRRITATION [None]
  - EYELID OPERATION [None]
  - EYELID PTOSIS [None]
  - MULTIPLE ALLERGIES [None]
  - OCULAR HYPERAEMIA [None]
